FAERS Safety Report 9342998 (Version 1)
Quarter: 2013Q2

REPORT INFORMATION
  Report Type: Spontaneous
  Country: FR (occurrence: FR)
  Receive Date: 20130611
  Receipt Date: 20130611
  Transmission Date: 20140414
  Serious: Yes (Hospitalization)
  Sender: FDA-Public Use
  Company Number: FR-BAYER-2013-072022

PATIENT
  Age: 65 Year
  Sex: Male
  Weight: 102 kg

DRUGS (1)
  1. PARACETAMOL [Suspect]
     Indication: ARTHRALGIA
     Dosage: 4 G, (1G PER HOUR)

REACTIONS (4)
  - Pain [None]
  - Haemorrhage [None]
  - International normalised ratio increased [None]
  - Inappropriate schedule of drug administration [None]
